FAERS Safety Report 9384327 (Version 2)
Quarter: 2014Q1

REPORT INFORMATION
  Report Type: Report from Study
  Country: BR (occurrence: BR)
  Receive Date: 20130705
  Receipt Date: 20140305
  Transmission Date: 20141002
  Serious: Yes (Hospitalization, Other)
  Sender: FDA-Public Use
  Company Number: PHHY2013BR068725

PATIENT
  Age: 52 Year
  Sex: Male

DRUGS (6)
  1. GALVUS MET [Suspect]
     Indication: DIABETES MELLITUS
     Dosage: 1 DF(850 MET/50MG VILDA), QD(IN THE MORNING)
     Route: 048
     Dates: start: 2009, end: 20140226
  2. GALVUS [Suspect]
     Indication: DIABETES MELLITUS
     Dosage: 1 DF(50MG), A DAY
  3. GALVUS [Suspect]
     Dosage: 3 UNK, (50 MG) PER DAY
     Dates: start: 20130809
  4. DIOVAN HCT [Suspect]
     Indication: HYPERTENSION
     Dosage: 1 DF(160 VALS/12.5MG HCTZ), QD(IN THE MORNING)
     Route: 048
     Dates: start: 2009, end: 20140226
  5. METFORMIN [Suspect]
     Indication: DIABETES MELLITUS
     Dosage: 3 DF(230 MG), A DAY
  6. GLIMEPIRIDE [Suspect]
     Indication: DIABETES MELLITUS
     Dosage: 3 DF(230 MG), A DAY

REACTIONS (5)
  - Cholecystitis infective [Recovered/Resolved]
  - Bladder dilatation [Recovering/Resolving]
  - Chest pain [Recovering/Resolving]
  - Dyspnoea [Recovering/Resolving]
  - Blood glucose increased [Recovered/Resolved]
